FAERS Safety Report 9355187 (Version 1)
Quarter: 2013Q2

REPORT INFORMATION
  Report Type: Report from Study
  Country: US (occurrence: US)
  Receive Date: 20130619
  Receipt Date: 20130619
  Transmission Date: 20140414
  Serious: Yes (Other)
  Sender: FDA-Public Use
  Company Number: PHEH2013US013081

PATIENT
  Sex: Male

DRUGS (2)
  1. ACZ885 [Suspect]
     Dosage: 150 MG, UNK
  2. AMBIEN [Concomitant]

REACTIONS (2)
  - Back pain [Unknown]
  - Arthralgia [Unknown]
